FAERS Safety Report 7690093-0 (Version None)
Quarter: 2011Q3

REPORT INFORMATION
  Report Type: 
  Country: None (occurrence: None)
  Receive Date: 20110818
  Receipt Date: 20100709
  Transmission Date: 20111222
  Serious: No
  Sender: FDA-Public Use
  Company Number: US-BAYER-201029455NA

PATIENT
  Age: 56 Year
  Sex: Female

DRUGS (2)
  1. LOVENOX [Concomitant]
     Indication: HEART VALVE REPLACEMENT
  2. MIRENA [Suspect]
     Indication: MENORRHAGIA
     Dosage: 20 MCG/24HR, CONT
     Route: 015
     Dates: start: 20100708

REACTIONS (1)
  - POST PROCEDURAL HAEMORRHAGE [None]
